FAERS Safety Report 7389455-0 (Version None)
Quarter: 2011Q2

REPORT INFORMATION
  Report Type: 
  Country: None (occurrence: None)
  Receive Date: 20110401
  Receipt Date: 20110325
  Transmission Date: 20111010
  Serious: Yes (Death, Life-Threatening)
  Sender: FDA-Public Use
  Company Number: JP-JNJFOC-20100708882

PATIENT
  Sex: Female
  Weight: 53 kg

DRUGS (8)
  1. DOXIL [Suspect]
     Indication: MALIGNANT ASCITES
     Dosage: CYCLE 1
     Route: 042
  2. MAGMITT [Concomitant]
     Indication: CONSTIPATION
     Route: 048
  3. ALDACTONE [Concomitant]
     Indication: ASCITES
     Route: 048
  4. ETODOLAC [Concomitant]
     Indication: CANCER PAIN
     Route: 048
  5. PURSENNID [Concomitant]
     Indication: CONSTIPATION
     Route: 048
  6. BETAMETHASONE [Concomitant]
     Indication: CACHEXIA
     Route: 048
  7. DOXIL [Suspect]
     Indication: OVARIAN CANCER
     Dosage: CYCLE 1
     Route: 042
  8. LASIX [Concomitant]
     Indication: ASCITES
     Route: 048

REACTIONS (2)
  - INTERSTITIAL LUNG DISEASE [None]
  - OVARIAN CANCER [None]
